FAERS Safety Report 9039214 (Version 1)
Quarter: 2013Q2

REPORT INFORMATION
  Report Type: Spontaneous
  Country: US (occurrence: None)
  Receive Date: 20130123
  Receipt Date: 20130123
  Transmission Date: 20140414
  Serious: Yes (Other)
  Sender: FDA-Public Use
  Company Number: None

PATIENT
  Age: 86 Year
  Sex: Male
  Weight: 104.78 kg

DRUGS (9)
  1. GEMCITABINE [Suspect]
     Indication: CHOLANGIOCARCINOMA
     Dosage: IV EVERY 2 WEEKS
     Route: 042
     Dates: start: 20121011, end: 20130116
  2. ERLOTINIB [Suspect]
     Indication: CHOLANGIOCARCINOMA
     Dosage: PO DAYS 3-8 AFTER GEMZAR
     Route: 048
     Dates: start: 20121013, end: 20130109
  3. ONDANSETRON [Concomitant]
  4. PROCHOLRPERAZINE [Concomitant]
  5. DEXAMETHASONE [Concomitant]
  6. PHENERGAN GEL [Concomitant]
  7. LORAZEPAM [Concomitant]
  8. OMEPRAZOLE [Concomitant]
  9. PEPTO BISMOL [Concomitant]

REACTIONS (1)
  - Cerebral infarction [None]
